FAERS Safety Report 18260397 (Version 2)
Quarter: 2020Q4

REPORT INFORMATION
  Report Type: Spontaneous
  Country: IN (occurrence: IN)
  Receive Date: 20200914
  Receipt Date: 20201008
  Transmission Date: 20210113
  Serious: Yes (Other)
  Sender: FDA-Public Use
  Company Number: IN-DRREDDYS-USA/IND/20/0126734

PATIENT
  Age: 44 Year
  Sex: Female

DRUGS (6)
  1. TRASTUZUMAB. [Concomitant]
     Active Substance: TRASTUZUMAB
     Indication: INVASIVE BREAST CARCINOMA
  2. DOCETAXEL. [Suspect]
     Active Substance: DOCETAXEL
     Indication: METASTASES TO BREAST
  3. TRASTUZUMAB. [Concomitant]
     Active Substance: TRASTUZUMAB
     Indication: METASTASES TO LYMPH NODES
  4. TRASTUZUMAB. [Concomitant]
     Active Substance: TRASTUZUMAB
     Indication: METASTASES TO BREAST
  5. DOCETAXEL. [Suspect]
     Active Substance: DOCETAXEL
     Indication: INVASIVE BREAST CARCINOMA
  6. DOCETAXEL. [Suspect]
     Active Substance: DOCETAXEL
     Indication: METASTASES TO LYMPH NODES

REACTIONS (1)
  - Myositis [Recovered/Resolved]
